FAERS Safety Report 6547990-9 (Version None)
Quarter: 2010Q1

REPORT INFORMATION
  Report Type: 
  Country: None (occurrence: None)
  Receive Date: 20100124
  Receipt Date: 20091208
  Transmission Date: 20100710
  Serious: No
  Sender: FDA-Public Use
  Company Number: US-ALEXION-A200901061

PATIENT

DRUGS (4)
  1. SOLIRIS [Suspect]
     Indication: PAROXYSMAL NOCTURNAL HAEMOGLOBINURIA
     Dosage: 600 MG QWK X4
     Route: 042
     Dates: start: 20090201, end: 20090301
  2. SOLIRIS [Suspect]
     Dosage: 900 MG Q2WKS
     Dates: start: 20090301
  3. DECADRON [Suspect]
     Indication: PREMEDICATION
     Dosage: UNK
     Dates: start: 20090305
  4. BENADRYL [Concomitant]
     Indication: PREMEDICATION

REACTIONS (1)
  - WEIGHT INCREASED [None]
